FAERS Safety Report 6956548-9 (Version None)
Quarter: 2010Q3

REPORT INFORMATION
  Report Type: 
  Country: None (occurrence: None)
  Receive Date: 20100830
  Receipt Date: 20100212
  Transmission Date: 20110219
  Serious: No
  Sender: FDA-Public Use
  Company Number: US-AMGEN-QUU392563

PATIENT
  Sex: Female

DRUGS (7)
  1. NEUPOGEN [Suspect]
     Indication: MYELODYSPLASTIC SYNDROME
  2. SYNTHROID [Concomitant]
  3. ATENOLOL [Concomitant]
  4. TRICOR [Concomitant]
  5. VITAMIN B6 [Concomitant]
  6. FOLIC ACID [Concomitant]
  7. PROCRIT [Concomitant]

REACTIONS (8)
  - DRY SKIN [None]
  - INCREASED APPETITE [None]
  - LIP DISCOLOURATION [None]
  - PAIN [None]
  - PRURITUS [None]
  - SWELLING FACE [None]
  - WEIGHT DECREASED [None]
  - YELLOW SKIN [None]
